FAERS Safety Report 12843470 (Version 1)
Quarter: 2016Q4

REPORT INFORMATION
  Report Type: Spontaneous
  Country: FR (occurrence: FR)
  Receive Date: 20161013
  Receipt Date: 20161013
  Transmission Date: 20170207
  Serious: Yes (Death, Other)
  Sender: FDA-Public Use
  Company Number: FR-BAXTER-2016BAX050873

PATIENT
  Age: 65 Year
  Sex: Female

DRUGS (7)
  1. DEXAMETHASONE. [Suspect]
     Active Substance: DEXAMETHASONE
     Indication: PREMEDICATION
     Dosage: 30 MINUTES BEFORE THE ADMINISTRATION OF HOLOXAN
     Route: 042
     Dates: start: 20160914, end: 20160914
  2. DOXORUBICIN [Concomitant]
     Active Substance: DOXORUBICIN
     Indication: CHEMOTHERAPY
     Dosage: FIRST LINE OF CHEMOTHERAPY
     Route: 065
     Dates: start: 201603, end: 201606
  3. UROMITEXAN 1 G/10 ML, SOLUTION INJECTABLE POUR PERFUSION EN FLACON [Suspect]
     Active Substance: MESNA
     Indication: PRODUCT USED FOR UNKNOWN INDICATION
     Dosage: JUST BEFORE THE ADMINISTRATION OF HOLOXAN
     Route: 042
     Dates: start: 20160914, end: 20160914
  4. HOLOXAN 2000 MG, POUDRE POUR USAGE PARENT?RAL [Suspect]
     Active Substance: IFOSFAMIDE
     Indication: SYNOVIAL SARCOMA METASTATIC
     Dosage: FIRST DAY OF THE FIRST COURSE
     Route: 042
     Dates: start: 20160914, end: 20160915
  5. ONDANSETRON [Suspect]
     Active Substance: ONDANSETRON
     Indication: PREMEDICATION
     Dosage: 30 MINUTES BEFORE THE ADMINISTRATION OF HOLOXAN
     Route: 042
     Dates: start: 20160914, end: 20160914
  6. ATARAX [Concomitant]
     Active Substance: HYDROXYZINE\HYDROXYZINE HYDROCHLORIDE
     Indication: PRODUCT USED FOR UNKNOWN INDICATION
     Route: 065
     Dates: start: 201602
  7. ALPRAZOLAM. [Concomitant]
     Active Substance: ALPRAZOLAM
     Indication: PRODUCT USED FOR UNKNOWN INDICATION
     Route: 065

REACTIONS (5)
  - Leukopenia [Unknown]
  - Device related infection [Unknown]
  - Cardio-respiratory arrest [Fatal]
  - Encephalopathy [Fatal]
  - Agranulocytosis [Unknown]

NARRATIVE: CASE EVENT DATE: 20160915
